FAERS Safety Report 7948785-1 (Version None)
Quarter: 2011Q4

REPORT INFORMATION
  Report Type: 
  Country: None (occurrence: None)
  Receive Date: 20111128
  Receipt Date: 20111128
  Transmission Date: 20120403
  Serious: Yes (Hospitalization)
  Sender: FDA-Public Use
  Company Number: None

PATIENT
  Age: 65 Year
  Sex: Female
  Weight: 104.6 kg

DRUGS (2)
  1. RIDAFOROLIMUS [Suspect]
     Dosage: 10MG PO DAYS 1-5;/-12
     Route: 048
     Dates: start: 20111031, end: 20111111
  2. CARBOPLATIN [Suspect]
     Indication: ENDOMETRIAL CANCER
     Dosage: CARBOAUC5/TAXOL 175MG/M2
     Dates: start: 20111031, end: 20111031

REACTIONS (2)
  - DRUG INEFFECTIVE [None]
  - PULMONARY EMBOLISM [None]
